FAERS Safety Report 23214253 (Version 1)
Quarter: 2023Q4

REPORT INFORMATION
  Report Type: Spontaneous
  Country: US (occurrence: None)
  Receive Date: 20231121
  Receipt Date: 20231121
  Transmission Date: 20240110
  Serious: Yes (Hospitalization)
  Sender: FDA-Public Use
  Company Number: None

PATIENT
  Age: 63 Year
  Sex: Female
  Weight: 83.1 kg

DRUGS (2)
  1. LINEZOLID [Suspect]
     Active Substance: LINEZOLID
     Indication: Decubitus ulcer
     Dosage: FREQUENCY : TWICE A DAY;?
     Dates: start: 20230112, end: 20230214
  2. LINEZOLID [Suspect]
     Active Substance: LINEZOLID
     Indication: Wound infection staphylococcal

REACTIONS (1)
  - Anaemia [None]

NARRATIVE: CASE EVENT DATE: 20230214
